FAERS Safety Report 10654397 (Version 1)
Quarter: 2014Q4

REPORT INFORMATION
  Report Type: Spontaneous
  Country: US (occurrence: None)
  Receive Date: 20141215
  Receipt Date: 20141215
  Transmission Date: 20150529
  Serious: Yes (Hospitalization, Other)
  Sender: FDA-Public Use
  Company Number: None

PATIENT
  Age: 61 Year
  Sex: Female
  Weight: 85.73 kg

DRUGS (6)
  1. RANIBIZUMAB [Suspect]
     Active Substance: RANIBIZUMAB
     Indication: DIABETIC RETINAL OEDEMA
     Dosage: INTRAVITREAL
     Dates: start: 20141014, end: 20141111
  2. HUMALOG PEN [Concomitant]
     Active Substance: INSULIN LISPRO
  3. QUESTRAN [Concomitant]
     Active Substance: CHOLESTYRAMINE
  4. EFFEXOR XR [Concomitant]
     Active Substance: VENLAFAXINE HYDROCHLORIDE
  5. METOPROLOL SUCCINATE EXTENDED-RELEASE [Concomitant]
     Active Substance: METOPROLOL SUCCINATE
  6. LEVEMIR [Concomitant]
     Active Substance: INSULIN DETEMIR

REACTIONS (6)
  - Dysarthria [None]
  - Cerebrovascular accident [None]
  - Blood glucose increased [None]
  - Hemiparesis [None]
  - Blood pressure increased [None]
  - VIIth nerve paralysis [None]

NARRATIVE: CASE EVENT DATE: 20141208
